FAERS Safety Report 18340105 (Version 1)
Quarter: 2020Q4

REPORT INFORMATION
  Report Type: Spontaneous
  Country: CA (occurrence: CA)
  Receive Date: 20201002
  Receipt Date: 20201002
  Transmission Date: 20210113
  Serious: Yes (Hospitalization)
  Sender: FDA-Public Use
  Company Number: CA-JNJFOC-20200948253

PATIENT
  Age: 26 Year
  Sex: Female

DRUGS (6)
  1. DIMENHYDRINATE. [Concomitant]
     Active Substance: DIMENHYDRINATE
     Route: 048
  2. HYDROCORTISONE. [Concomitant]
     Active Substance: HYDROCORTISONE
     Indication: PREMEDICATION
     Route: 042
  3. INFLIXIMAB, RECOMBINANT [Suspect]
     Active Substance: INFLIXIMAB
     Indication: COLITIS ULCERATIVE
     Route: 042
  4. DIMENHYDRINATE. [Concomitant]
     Active Substance: DIMENHYDRINATE
     Route: 048
  5. DIMENHYDRINATE. [Concomitant]
     Active Substance: DIMENHYDRINATE
     Indication: PRODUCT USED FOR UNKNOWN INDICATION
     Route: 048
  6. DIPHENHYDRAMINE. [Concomitant]
     Active Substance: DIPHENHYDRAMINE
     Indication: PREMEDICATION
     Route: 048

REACTIONS (6)
  - Heart rate decreased [Not Recovered/Not Resolved]
  - Condition aggravated [Not Recovered/Not Resolved]
  - Haemorrhage [Not Recovered/Not Resolved]
  - Off label use [Unknown]
  - Fatigue [Not Recovered/Not Resolved]
  - Malaise [Not Recovered/Not Resolved]
